FAERS Safety Report 25432027 (Version 1)
Quarter: 2025Q2

REPORT INFORMATION
  Report Type: Spontaneous
  Country: US (occurrence: US)
  Receive Date: 20250613
  Receipt Date: 20250613
  Transmission Date: 20250716
  Serious: Yes (Hospitalization, Other)
  Sender: NOVO NORDISK
  Company Number: US-NOVOPROD-1452373

PATIENT
  Age: 40 Year
  Sex: Female

DRUGS (4)
  1. NOVOLOG [Suspect]
     Active Substance: INSULIN ASPART
     Indication: Type 2 diabetes mellitus
     Dosage: 25 U, QD
     Route: 058
  2. NOVOLOG [Suspect]
     Active Substance: INSULIN ASPART
     Dosage: 15 U, QD (DECREASED DOSE)
     Route: 058
  3. LANTUS [Concomitant]
     Active Substance: INSULIN GLARGINE
     Indication: Type 2 diabetes mellitus
     Dosage: 100 U, QD
  4. LANTUS [Concomitant]
     Active Substance: INSULIN GLARGINE
     Dosage: 40 U, QD (DECREASED DOSE)

REACTIONS (7)
  - Hypotension [Unknown]
  - Cerebrovascular accident [Unknown]
  - Blood glucose increased [Unknown]
  - Hypoaesthesia [Unknown]
  - Heart rate increased [Recovered/Resolved]
  - Blood glucose decreased [Unknown]
  - Blood glucose decreased [Unknown]

NARRATIVE: CASE EVENT DATE: 20000101
